FAERS Safety Report 18732457 (Version 2)
Quarter: 2021Q1

REPORT INFORMATION
  Report Type: Spontaneous
  Country: FR (occurrence: FR)
  Receive Date: 20210113
  Receipt Date: 20210127
  Transmission Date: 20210419
  Serious: Yes (Hospitalization)
  Sender: FDA-Public Use
  Company Number: FR-SA-2021SA003794

PATIENT
  Sex: Female

DRUGS (5)
  1. LEPTICUR [Suspect]
     Active Substance: TROPATEPINE HYDROCHLORIDE
     Dosage: UNK
  2. TERCIAN [Suspect]
     Active Substance: CYAMEMAZINE
     Dosage: UNK
  3. SOLIAN [Suspect]
     Active Substance: AMISULPRIDE
     Dosage: UNK
  4. IMOVANE [Suspect]
     Active Substance: ZOPICLONE
     Dosage: UNK
  5. STILNOX [Suspect]
     Active Substance: ZOLPIDEM TARTRATE
     Dosage: UNK

REACTIONS (18)
  - Visual impairment [Unknown]
  - Emotional distress [Unknown]
  - Skin disorder [Unknown]
  - Product quality issue [Unknown]
  - Incorrect dose administered [Unknown]
  - Unevaluable event [Unknown]
  - Impaired quality of life [Unknown]
  - Weight increased [Unknown]
  - Medication error [Unknown]
  - Loss of personal independence in daily activities [Unknown]
  - Hair colour changes [Unknown]
  - Insomnia [Unknown]
  - Hormone level abnormal [Unknown]
  - General physical condition abnormal [Unknown]
  - Drug ineffective [Unknown]
  - Impatience [Unknown]
  - Amnesia [Unknown]
  - Gastrointestinal motility disorder [Unknown]
